FAERS Safety Report 16533132 (Version 1)
Quarter: 2019Q3

REPORT INFORMATION
  Report Type: Report from Study
  Country: US (occurrence: US)
  Receive Date: 20190705
  Receipt Date: 20190705
  Transmission Date: 20191004
  Serious: Yes (Death)
  Sender: FDA-Public Use
  Company Number: US-PFIZER INC-2015056667

PATIENT

DRUGS (7)
  1. CYTARABINE. [Suspect]
     Active Substance: CYTARABINE
     Indication: ACUTE LYMPHOCYTIC LEUKAEMIA
     Dosage: 70 MG, CYCLIC
     Route: 037
  2. ALLOPURINOL. [Suspect]
     Active Substance: ALLOPURINOL
     Indication: ACUTE LYMPHOCYTIC LEUKAEMIA
     Dosage: 300 MG, DAILY ((UNLESS ALLERGIC), TO CONTINUE UNTIL PERIPHERAL BLASTS AND EXTRAMEDULLARY DISEASE )
  3. VINCRISTINE SULFATE. [Suspect]
     Active Substance: VINCRISTINE SULFATE
     Indication: ACUTE LYMPHOCYTIC LEUKAEMIA
     Dosage: 1.5 MG/M2, CYCLIC
     Route: 042
  4. DAUNORUBICIN [Suspect]
     Active Substance: DAUNORUBICIN
     Indication: ACUTE LYMPHOCYTIC LEUKAEMIA
     Dosage: 25 MG/M2, CYCLIC
     Route: 042
  5. PREDNISONE. [Suspect]
     Active Substance: PREDNISONE
     Indication: ACUTE LYMPHOCYTIC LEUKAEMIA
     Dosage: 60 MG/M2, DAILY (60 MG/M2/DAY PO OR IV IN TWO DIVIDED DOSES ON 01-28)
  6. METHOTREXATE SODIUM. [Suspect]
     Active Substance: METHOTREXATE SODIUM
     Indication: ACUTE LYMPHOCYTIC LEUKAEMIA
     Dosage: 15 MG, CYCLIC
     Route: 037
  7. PEGASPARGASE [Suspect]
     Active Substance: PEGASPARGASE
     Indication: ACUTE LYMPHOCYTIC LEUKAEMIA
     Dosage: 2500 IU/M2, CYCLIC
     Route: 030

REACTIONS (1)
  - Ventricular arrhythmia [Fatal]
